FAERS Safety Report 17425310 (Version 2)
Quarter: 2020Q1

REPORT INFORMATION
  Report Type: Spontaneous
  Country: BR (occurrence: BR)
  Receive Date: 20200218
  Receipt Date: 20200313
  Transmission Date: 20200409
  Serious: Yes (Other)
  Sender: FDA-Public Use
  Company Number: BR-TORRENT-00005238

PATIENT
  Age: 65 Year
  Sex: Male
  Weight: 88 kg

DRUGS (1)
  1. OLMECOR [Suspect]
     Active Substance: OLMESARTAN MEDOXOMIL
     Indication: HYPERTENSION
     Dosage: 1 TABLET DAILY, MORE THAN 5 YEARS
     Route: 048

REACTIONS (1)
  - Prostate cancer [Not Recovered/Not Resolved]

NARRATIVE: CASE EVENT DATE: 201912
